FAERS Safety Report 15524684 (Version 2)
Quarter: 2018Q4

REPORT INFORMATION
  Report Type: Spontaneous
  Country: US (occurrence: US)
  Receive Date: 20181018
  Receipt Date: 20181022
  Transmission Date: 20190205
  Serious: No
  Sender: FDA-Public Use
  Company Number: US-PFIZER INC-2018418532

PATIENT
  Age: 52 Year
  Sex: Female
  Weight: 49.9 kg

DRUGS (5)
  1. CHANTIX [Suspect]
     Active Substance: VARENICLINE TARTRATE
     Dosage: 0.5 MG, 1X/DAY
     Route: 048
  2. CHANTIX [Suspect]
     Active Substance: VARENICLINE TARTRATE
     Dosage: 0.5 MG, 2X/DAY
     Route: 048
  3. CHANTIX [Suspect]
     Active Substance: VARENICLINE TARTRATE
     Indication: SMOKING CESSATION THERAPY
     Dosage: 1 MG, 2X/DAY
  4. ATORVASTATIN [Concomitant]
     Active Substance: ATORVASTATIN
     Indication: BLOOD PRESSURE FLUCTUATION
     Dosage: 10 MG, 1X/DAY (ONCE A DAY IN THE EVENINGS)
     Route: 048
  5. TRINTELLIX [Concomitant]
     Active Substance: VORTIOXETINE HYDROBROMIDE
     Indication: DEPRESSION
     Dosage: 10 MG, 1X/DAY
     Route: 048

REACTIONS (15)
  - Product dose omission [Unknown]
  - Vomiting [Unknown]
  - Retching [Unknown]
  - Malaise [Recovered/Resolved]
  - Pyrexia [Unknown]
  - Pain [Unknown]
  - Abdominal discomfort [Unknown]
  - Nausea [Unknown]
  - Feeling abnormal [Unknown]
  - Feeling of body temperature change [Unknown]
  - Diarrhoea [Unknown]
  - Chills [Unknown]
  - Nasal congestion [Unknown]
  - Headache [Recovered/Resolved]
  - Anxiety [Unknown]

NARRATIVE: CASE EVENT DATE: 20181008
